FAERS Safety Report 5473200-X (Version None)
Quarter: 2007Q3

REPORT INFORMATION
  Report Type: 
  Country: None (occurrence: None)
  Receive Date: 20070927
  Receipt Date: 20070919
  Transmission Date: 20080115
  Serious: Yes (Hospitalization)
  Sender: FDA-Public Use
  Company Number: 2007SP018627

PATIENT
  Age: 59 Year
  Sex: Male
  Weight: 89.4 kg

DRUGS (4)
  1. TEMOZOLOMIDE [Suspect]
     Indication: GLIOBLASTOMA
     Dosage: 160 ; QD; PO
     Route: 048
     Dates: start: 20070712, end: 20070822
  2. FELODIPINE [Concomitant]
  3. LEVOTHYROXINE SODIUM [Concomitant]
  4. PHENYTOIN [Concomitant]

REACTIONS (2)
  - DEVICE RELATED INFECTION [None]
  - GASTROINTESTINAL DISORDER [None]
